FAERS Safety Report 11185362 (Version 1)
Quarter: 2015Q2

REPORT INFORMATION
  Report Type: Spontaneous
  Country: US (occurrence: CZ)
  Receive Date: 20150612
  Receipt Date: 20150612
  Transmission Date: 20150821
  Serious: Yes (Life-Threatening, Hospitalization, Disabling)
  Sender: FDA-Public Use
  Company Number: CZ-FRI-1000077269

PATIENT
  Age: 62 Year
  Sex: Male
  Weight: 90 kg

DRUGS (10)
  1. BERODUAL [Concomitant]
     Active Substance: FENOTEROL HYDROBROMIDE\IPRATROPIUM BROMIDE
  2. HUMIRA [Concomitant]
     Active Substance: ADALIMUMAB
  3. COMBAIR [Concomitant]
  4. SPIRIVA [Concomitant]
     Active Substance: TIOTROPIUM BROMIDE MONOHYDRATE
  5. EUPHYLLIN [Concomitant]
  6. HYDROCHLOROTHIAZID LECIVA [Concomitant]
  7. PANTOPRAZOL +PHARMA [Concomitant]
  8. ROFLUMILAST [Suspect]
     Active Substance: ROFLUMILAST
     Indication: CHRONIC OBSTRUCTIVE PULMONARY DISEASE
     Dosage: 500 MCG
     Route: 048
     Dates: start: 20141205, end: 20150121
  9. URSOSAN [Concomitant]
  10. PIRAMIL [Concomitant]

REACTIONS (5)
  - Insomnia [Recovered/Resolved]
  - Nausea [Recovered/Resolved]
  - Acute myocardial infarction [Unknown]
  - Diarrhoea [Recovered/Resolved]
  - Dyspnoea [Recovered/Resolved]

NARRATIVE: CASE EVENT DATE: 201412
